FAERS Safety Report 7707121-6 (Version None)
Quarter: 2011Q3

REPORT INFORMATION
  Report Type: 
  Country: None (occurrence: None)
  Receive Date: 20110824
  Receipt Date: 20110812
  Transmission Date: 20111222
  Serious: Yes (Other)
  Sender: FDA-Public Use
  Company Number: CA-UCBSA-039141

PATIENT
  Sex: Female
  Weight: 104.3 kg

DRUGS (1)
  1. CIMZIA [Suspect]
     Indication: RHEUMATOID ARTHRITIS
     Dosage: PREVIOUSLY ON 400 MG
     Route: 058
     Dates: start: 20110511, end: 20110101

REACTIONS (3)
  - LUNG NEOPLASM [None]
  - PAIN [None]
  - INFLAMMATION [None]
